FAERS Safety Report 11537439 (Version 1)
Quarter: 2015Q3

REPORT INFORMATION
  Report Type: Spontaneous
  Country: US (occurrence: US)
  Receive Date: 20150922
  Receipt Date: 20150922
  Transmission Date: 20151125
  Serious: No
  Sender: FDA-Public Use
  Company Number: US-PFIZER INC-2015313863

PATIENT
  Age: 71 Year
  Sex: Female
  Weight: 62 kg

DRUGS (7)
  1. ANASTROZOLE. [Concomitant]
     Active Substance: ANASTROZOLE
     Dosage: 1 MG, UNK
  2. CELECOXIB. [Suspect]
     Active Substance: CELECOXIB
     Indication: SCIATICA
     Dosage: 200 MG, UNK
  3. AMBIEN CR [Concomitant]
     Active Substance: ZOLPIDEM TARTRATE
     Dosage: 12.5 MG, UNK
  4. METFORMIN [Concomitant]
     Active Substance: METFORMIN HYDROCHLORIDE
     Dosage: UNK
  5. LISINOPRIL. [Concomitant]
     Active Substance: LISINOPRIL
     Dosage: 30 MG, UNK
  6. LANTUS [Concomitant]
     Active Substance: INSULIN GLARGINE
     Dosage: 20 IU, 1X/DAY
  7. GABAPENTIN. [Concomitant]
     Active Substance: GABAPENTIN
     Dosage: UNK

REACTIONS (1)
  - Drug ineffective [Unknown]
